FAERS Safety Report 8759755 (Version 1)
Quarter: 2012Q4

REPORT INFORMATION
  Report Type: 
  Country: US (occurrence: US)
  Receive Date: 20120829
  Receipt Date: 20120829
  Transmission Date: 20130627
  Serious: Yes (Other)
  Sender: FDA-Public Use
  Company Number: US-ROCHE-1106894

PATIENT
  Age: 28 Year
  Sex: Female
  Weight: 83.08 kg

DRUGS (4)
  1. ZELBORAF [Suspect]
     Indication: MALIGNANT MELANOMA
     Route: 048
     Dates: start: 20120726, end: 20120817
  2. ELAVIL [Concomitant]
  3. PHENERGAN [Concomitant]
     Indication: NAUSEA
     Route: 048
  4. BUSPAR [Concomitant]
     Indication: DEPRESSION
     Route: 048

REACTIONS (4)
  - Rash [Recovered/Resolved]
  - Pharyngeal oedema [Recovered/Resolved]
  - Swelling face [Unknown]
  - Dysphagia [Unknown]
